FAERS Safety Report 18439713 (Version 1)
Quarter: 2020Q4

REPORT INFORMATION
  Report Type: Spontaneous
  Country: US (occurrence: US)
  Receive Date: 20201029
  Receipt Date: 20201029
  Transmission Date: 20210114
  Serious: No
  Sender: FDA-Public Use
  Company Number: US-CELGENEUS-USA-20201005721

PATIENT

DRUGS (2)
  1. LENALIDOMIDE [Suspect]
     Active Substance: LENALIDOMIDE
     Indication: OFF LABEL USE
  2. LENALIDOMIDE [Suspect]
     Active Substance: LENALIDOMIDE
     Indication: GLIOBLASTOMA MULTIFORME
     Dosage: 116 MICROGRAM/SQ. METER
     Route: 048

REACTIONS (1)
  - Palmar-plantar erythrodysaesthesia syndrome [Unknown]
